FAERS Safety Report 19089949 (Version 1)
Quarter: 2021Q2

REPORT INFORMATION
  Report Type: Report from Study
  Country: BR (occurrence: BR)
  Receive Date: 20210404
  Receipt Date: 20210404
  Transmission Date: 20210717
  Serious: Yes (Other)
  Sender: FDA-Public Use
  Company Number: NVSC2021BR070958

PATIENT
  Sex: Male

DRUGS (1)
  1. ENTRESTO [Suspect]
     Active Substance: SACUBITRIL\VALSARTAN
     Indication: CARDIAC FAILURE
     Dosage: 100 MG, BID
     Route: 065

REACTIONS (4)
  - Muscle atrophy [Recovering/Resolving]
  - Renal disorder [Unknown]
  - Neoplasm malignant [Recovering/Resolving]
  - Gait disturbance [Recovering/Resolving]
